FAERS Safety Report 19360620 (Version 1)
Quarter: 2021Q2

REPORT INFORMATION
  Report Type: Report from Study
  Country: None (occurrence: US)
  Receive Date: 20210602
  Receipt Date: 20210602
  Transmission Date: 20210717
  Serious: No
  Sender: FDA-Public Use
  Company Number: US-MDD US OPERATIONS-MDD202009-001764

PATIENT
  Age: 68 Year
  Sex: Male

DRUGS (13)
  1. VITAMIN B12 [Concomitant]
     Active Substance: CYANOCOBALAMIN
     Dosage: NOT PROVIDED
  2. ESCITALOPRAM OXALATE. [Concomitant]
     Active Substance: ESCITALOPRAM OXALATE
     Dosage: NOT PROVIDED
  3. CARBIDOPA?LEVODOPA [Concomitant]
     Active Substance: CARBIDOPA\LEVODOPA
     Dosage: NOT PROVIDED
  4. APOKYN [Suspect]
     Active Substance: APOMORPHINE HYDROCHLORIDE
     Indication: PARKINSON^S DISEASE
     Dosage: UP TO 0.2 ML
     Route: 058
     Dates: start: 2020, end: 202008
  5. VITAMIN D3 [Concomitant]
     Active Substance: CHOLECALCIFEROL
     Dosage: NOT PROVIDED
  6. CANNABIDIOL OIL [Concomitant]
     Active Substance: CANNABIDIOL
     Dosage: NOT PROVIDED
  7. PULMICORT FLEXHALER [Concomitant]
     Active Substance: BUDESONIDE
     Dosage: NOT PROVIDED
  8. GLUCOSAMINE AND CHONDROITIN [Concomitant]
     Active Substance: CHONDROITIN SULFATE (BOVINE)\GLUCOSAMINE HYDROCHLORIDE
     Dosage: NOT PROVIDED
  9. MODAFINIL. [Concomitant]
     Active Substance: MODAFINIL
     Dosage: NOT PROVIDED
  10. LANSOPRAZOLE DR [Concomitant]
     Active Substance: LANSOPRAZOLE
     Dosage: NOT PROVIDED
  11. TAMSULOSIN [Concomitant]
     Active Substance: TAMSULOSIN
     Dosage: NOT PROVIDED
  12. VENTOLIN HFA [Concomitant]
     Active Substance: ALBUTEROL SULFATE
     Dosage: NOT PROVIDED
  13. CARBIDOPA?LEVODOPA [Concomitant]
     Active Substance: CARBIDOPA\LEVODOPA
     Dosage: NOT PROVIDED

REACTIONS (2)
  - Somnolence [Unknown]
  - Therapy interrupted [Unknown]

NARRATIVE: CASE EVENT DATE: 2020
